FAERS Safety Report 9325436 (Version 1)
Quarter: 2013Q2

REPORT INFORMATION
  Report Type: Spontaneous
  Country: US (occurrence: None)
  Receive Date: 20130528
  Receipt Date: 20130528
  Transmission Date: 20140414
  Serious: Yes (Hospitalization)
  Sender: FDA-Public Use
  Company Number: 13AE008

PATIENT
  Age: 21 Year
  Sex: Female

DRUGS (1)
  1. ACETAMINOPHEN [Suspect]
     Indication: PAIN
     Dosage: 2, ONCE, BY MOUTH
     Route: 048
     Dates: start: 20130508

REACTIONS (3)
  - Nausea [None]
  - Vomiting [None]
  - Dysarthria [None]
